FAERS Safety Report 10099087 (Version 1)
Quarter: 2014Q2

REPORT INFORMATION
  Report Type: Spontaneous
  Country: AU (occurrence: AU)
  Receive Date: 20140423
  Receipt Date: 20140423
  Transmission Date: 20141212
  Serious: Yes (Hospitalization, Other)
  Sender: FDA-Public Use
  Company Number: AU-ASTRAZENECA-2014SE26705

PATIENT
  Age: 53 Year
  Sex: Male
  Weight: 84 kg

DRUGS (9)
  1. CRESTOR [Suspect]
     Indication: DYSLIPIDAEMIA
     Route: 048
     Dates: start: 2003
  2. DIAZEPAM [Suspect]
     Indication: SCHIZOAFFECTIVE DISORDER
     Route: 048
     Dates: start: 2012
  3. CYMBALTA [Suspect]
     Indication: SCHIZOAFFECTIVE DISORDER
     Route: 048
     Dates: start: 2011
  4. OLANZAPINE [Suspect]
     Indication: SCHIZOAFFECTIVE DISORDER
     Route: 048
     Dates: start: 2012
  5. VARENICLINE [Suspect]
     Indication: SMOKING CESSATION THERAPY
     Dosage: MOST RECENT DOSE PRIOR TO THE EVENT: VARENICLINE TARTRATE 1 MG, BUPROPION HYDROCHLORIDE 150 MG
     Route: 048
     Dates: start: 20131007, end: 20131231
  6. VARENICLINE [Suspect]
     Indication: SMOKING CESSATION THERAPY
     Dosage: NICOTINE REPLACEMENT THERAPY, MOST RECENT DOSE PRIOR TO THE EVENT
     Route: 062
     Dates: start: 20131014, end: 20131231
  7. BUPROPION [Suspect]
  8. NICOTINE [Suspect]
  9. PLACEBO [Suspect]

REACTIONS (3)
  - Deep vein thrombosis [Unknown]
  - Psychotic disorder [Unknown]
  - Liver function test abnormal [Recovering/Resolving]
